FAERS Safety Report 4796664-3 (Version None)
Quarter: 2005Q4

REPORT INFORMATION
  Report Type: 
  Country: None (occurrence: None)
  Receive Date: 20051006
  Receipt Date: 20051006
  Transmission Date: 20060501
  Serious: Yes (Life-Threatening)
  Sender: FDA-Public Use
  Company Number: None

PATIENT
  Age: 28 Year
  Sex: Male
  Weight: 46 kg

DRUGS (11)
  1. RIFABUTIN [Suspect]
     Indication: MYCOBACTERIUM AVIUM COMPLEX INFECTION
     Dosage: 450 MG PO QD
     Route: 048
     Dates: start: 20041123, end: 20041207
  2. MEPRON [Concomitant]
  3. MYCOLEX [Concomitant]
  4. AZITHROMYCIN [Concomitant]
  5. ETHAMBUTOL [Concomitant]
  6. AMITRIPTYLINE HCL [Concomitant]
  7. TESTOSTERONE PATCH [Concomitant]
  8. SUSTIVA [Concomitant]
  9. TENZOVIR [Concomitant]
  10. PRILOSEC [Concomitant]
  11. NYSTATIN [Concomitant]

REACTIONS (9)
  - ANAEMIA [None]
  - DEHYDRATION [None]
  - DYSPNOEA [None]
  - GINGIVITIS [None]
  - NEUTROPENIA [None]
  - ODYNOPHAGIA [None]
  - PYREXIA [None]
  - THROMBOCYTOPENIA [None]
  - WHITE BLOOD CELL COUNT DECREASED [None]
